FAERS Safety Report 13139177 (Version 1)
Quarter: 2017Q1

REPORT INFORMATION
  Report Type: Report from Study
  Country: US (occurrence: US)
  Receive Date: 20170123
  Receipt Date: 20170123
  Transmission Date: 20170428
  Serious: Yes (Other)
  Sender: FDA-Public Use
  Company Number: US-PFIZER INC-2017026747

PATIENT
  Age: 50 Year
  Sex: Female

DRUGS (2)
  1. SUTENT [Suspect]
     Active Substance: SUNITINIB MALATE
     Indication: PARAGANGLION NEOPLASM MALIGNANT
     Dosage: 37.5 MG, DAILY
     Route: 048
     Dates: start: 20160608, end: 20160929
  2. SUTENT [Suspect]
     Active Substance: SUNITINIB MALATE
     Dosage: 25 MG, DAILY
     Route: 048
     Dates: start: 20160930

REACTIONS (3)
  - Bone marrow failure [Unknown]
  - Diarrhoea [Unknown]
  - Product use issue [Unknown]
